FAERS Safety Report 6004089-8 (Version None)
Quarter: 2008Q4

REPORT INFORMATION
  Report Type: 
  Country: None (occurrence: None)
  Receive Date: 20081216
  Receipt Date: 20081206
  Transmission Date: 20090506
  Serious: No
  Sender: FDA-Public Use
  Company Number: US-JNJFOC-20081002647

PATIENT
  Sex: Female
  Weight: 76.66 kg

DRUGS (3)
  1. INTELENCE [Suspect]
     Indication: HIV INFECTION
     Route: 048
  2. TRUVADA [Concomitant]
     Indication: HIV INFECTION
     Dosage: DOSE 200/300
  3. ISENTRESS [Concomitant]
     Indication: HIV INFECTION

REACTIONS (2)
  - MUSCULOSKELETAL PAIN [None]
  - RASH [None]
